FAERS Safety Report 6657815-9 (Version None)
Quarter: 2010Q1

REPORT INFORMATION
  Report Type: 
  Country: None (occurrence: None)
  Receive Date: 20100330
  Receipt Date: 20100317
  Transmission Date: 20100710
  Serious: Yes (Hospitalization)
  Sender: FDA-Public Use
  Company Number: US-ELI_LILLY_AND_COMPANY-US201003005289

PATIENT
  Age: 51 Year
  Sex: Male

DRUGS (5)
  1. CYMBALTA [Suspect]
     Indication: DEPRESSION
     Dosage: 60 MG, EACH EVENING
     Dates: start: 20080101, end: 20100311
  2. XANAX [Concomitant]
     Dosage: 1 MG, EACH EVENING
  3. LORCET-HD [Concomitant]
     Dosage: 1 D/F, EVERY 6 HRS
  4. DOMPERIDONE [Concomitant]
  5. METHADONE [Concomitant]
     Dosage: 2 UNK, EVERY 4 HRS

REACTIONS (6)
  - ABNORMAL BEHAVIOUR [None]
  - AGITATION [None]
  - ANXIETY [None]
  - FEELING ABNORMAL [None]
  - GASTROOESOPHAGEAL REFLUX DISEASE [None]
  - HIATUS HERNIA [None]
